FAERS Safety Report 12555971 (Version 1)
Quarter: 2016Q3

REPORT INFORMATION
  Report Type: Spontaneous
  Country: US (occurrence: US)
  Receive Date: 20160714
  Receipt Date: 20160714
  Transmission Date: 20161109
  Serious: No
  Sender: FDA-Public Use
  Company Number: US-BEH-2016071112

PATIENT
  Age: 57 Year
  Sex: Male
  Weight: 80.27 kg

DRUGS (18)
  1. ZEMAIRA [Suspect]
     Active Substance: .ALPHA.1-PROTEINASE INHIBITOR HUMAN
     Indication: ALPHA-1 ANTI-TRYPSIN DEFICIENCY
     Dosage: 60 MG/KG, QW
     Route: 042
  2. SODIUM CHLORIDE. [Concomitant]
     Active Substance: SODIUM CHLORIDE
  3. NORMAL SALINE [Concomitant]
     Active Substance: SODIUM CHLORIDE
  4. STERILE WATER [Concomitant]
     Active Substance: WATER
  5. OXYCODONE AND ACETAMINOPHEN [Concomitant]
     Active Substance: ACETAMINOPHEN\OXYCODONE HYDROCHLORIDE
  6. ROBAXIN-750 [Concomitant]
  7. DALIRESP [Concomitant]
     Active Substance: ROFLUMILAST
  8. DUONEB [Concomitant]
     Active Substance: ALBUTEROL SULFATE\IPRATROPIUM BROMIDE
  9. VITAMIN D                          /00107901/ [Concomitant]
     Active Substance: ERGOCALCIFEROL
  10. LMX                                /00033401/ [Concomitant]
  11. EPIPEN [Concomitant]
     Active Substance: EPINEPHRINE
  12. PROVENTIL HFA                      /00139501/ [Concomitant]
  13. HEPARIN [Concomitant]
     Active Substance: HEPARIN SODIUM
  14. DIPHENHYDRAMINE. [Concomitant]
     Active Substance: DIPHENHYDRAMINE
  15. NEXIUM [Concomitant]
     Active Substance: ESOMEPRAZOLE MAGNESIUM
  16. CATHFLO ACTIVASE [Concomitant]
     Active Substance: ALTEPLASE
  17. SYMBICORT [Concomitant]
     Active Substance: BUDESONIDE\FORMOTEROL FUMARATE DIHYDRATE
  18. XANAX [Concomitant]
     Active Substance: ALPRAZOLAM

REACTIONS (1)
  - Nasopharyngitis [Unknown]

NARRATIVE: CASE EVENT DATE: 201603
